FAERS Safety Report 5211589-7 (Version None)
Quarter: 2007Q1

REPORT INFORMATION
  Report Type: 
  Country: None (occurrence: None)
  Receive Date: 20070117
  Receipt Date: 20070117
  Transmission Date: 20070707
  Serious: Yes (Hospitalization)
  Sender: FDA-Public Use
  Company Number: None

PATIENT
  Age: 36 Year
  Sex: Female

DRUGS (3)
  1. TOPAMAX [Suspect]
     Indication: EPILEPSY
     Dosage: 800MG TOTAL DAILY PO
     Route: 048
     Dates: start: 20061002, end: 20061204
  2. DILANTIN [Concomitant]
  3. CHLORAZEPATE [Concomitant]

REACTIONS (4)
  - DEEP VEIN THROMBOSIS [None]
  - ENCEPHALOPATHY [None]
  - GAIT DISTURBANCE [None]
  - PULMONARY EMBOLISM [None]
